FAERS Safety Report 10971334 (Version 1)
Quarter: 2015Q1

REPORT INFORMATION
  Report Type: Report from Study
  Country: CA (occurrence: CA)
  Receive Date: 20150331
  Receipt Date: 20150331
  Transmission Date: 20150721
  Serious: Yes (Hospitalization)
  Sender: FDA-Public Use
  Company Number: CA-JNJFOC-20150320007

PATIENT
  Age: 21 Year
  Sex: Female
  Weight: 53.6 kg

DRUGS (1)
  1. REMICADE [Suspect]
     Active Substance: INFLIXIMAB
     Indication: CROHN^S DISEASE
     Route: 042
     Dates: start: 20141020

REACTIONS (1)
  - Ileectomy [Unknown]

NARRATIVE: CASE EVENT DATE: 20150227
